FAERS Safety Report 24643118 (Version 1)
Quarter: 2024Q4

REPORT INFORMATION
  Report Type: Spontaneous
  Country: US (occurrence: US)
  Receive Date: 20241120
  Receipt Date: 20241120
  Transmission Date: 20250114
  Serious: No
  Sender: PFIZER
  Company Number: US-PFIZER INC-PV202400148970

PATIENT
  Age: 80 Year
  Sex: Female

DRUGS (3)
  1. ALDACTONE [Suspect]
     Active Substance: SPIRONOLACTONE
     Dosage: TAKE 0.5 TABLETS (12.5) MG BY MOUTH IN THE MORNING
     Route: 048
     Dates: start: 20240619
  2. NEURONTIN [Concomitant]
     Active Substance: GABAPENTIN
     Dosage: TAKE 3 CAPSULES (300 MG) BY MOUTH IF NEEDED
     Route: 048
  3. TAFAMIDIS [Concomitant]
     Active Substance: TAFAMIDIS
     Dosage: TAKE 61 MG BY MOUTH IN THE MORNING
     Route: 048
     Dates: start: 20240614

REACTIONS (2)
  - Off label use [Unknown]
  - Wrong technique in product usage process [Unknown]
